FAERS Safety Report 8455441 (Version 9)
Quarter: 2012Q4

REPORT INFORMATION
  Report Type: Report from Study
  Country: BR (occurrence: BR)
  Receive Date: 20120313
  Receipt Date: 20121126
  Transmission Date: 20130627
  Serious: Yes (Life-Threatening, Hospitalization)
  Sender: FDA-Public Use
  Company Number: BR-NOVOPROD-346792

PATIENT
  Age: 71 Year
  Sex: Male
  Weight: 85.5 kg

DRUGS (2)
  1. LIRAGLUTIDE FLEXPEN [Suspect]
     Indication: TYPE 2 DIABETES MELLITUS
     Dosage: 1.8 mg, qd
     Route: 058
     Dates: start: 20120112, end: 20120211
  2. LIRAGLUTIDE FLEXPEN [Suspect]
     Dosage: 1.8 mg, qd
     Dates: start: 20120412

REACTIONS (1)
  - Cholecystitis [Recovered/Resolved]
